FAERS Safety Report 7474549-1 (Version None)
Quarter: 2011Q2

REPORT INFORMATION
  Report Type: 
  Country: None (occurrence: None)
  Receive Date: 20110503
  Receipt Date: 20110419
  Transmission Date: 20111010
  Serious: Yes (Death, Other)
  Sender: FDA-Public Use
  Company Number: WAES 1008FRA00018

PATIENT
  Age: 54 Year
  Sex: Male

DRUGS (15)
  1. DAPSONE [Suspect]
     Indication: PROPHYLAXIS
     Dosage: 100 MG/DAILY, PO
     Route: 048
     Dates: start: 20110115
  2. ACYCLOVIR [Concomitant]
  3. ISENTRESS [Suspect]
     Indication: HIV INFECTION
     Dosage: 800 MG/DAILY, PO
     Route: 048
     Dates: start: 20100503, end: 20100831
  4. AZITHROMYCIN [Concomitant]
  5. SULFAMETHOXAZOLE TRIMETHOPRIM [Concomitant]
  6. RIFAMPIN [Suspect]
     Indication: TUBERCULOSIS
     Dosage: 600 MG/DAILY, PO
     Route: 048
     Dates: start: 20100522, end: 20100810
  7. LEUCOVORIN CALCIUM [Concomitant]
  8. IVERMECTIN [Concomitant]
  9. PYRAZINAMIDE [Concomitant]
  10. TENOFOVIR DISOPROXIL FUMARATE [Suspect]
     Indication: HIV INFECTION
     Dosage: 300 MG/DAILY,PO
     Route: 048
     Dates: start: 20100530
  11. LAMIVUDINE [Suspect]
     Indication: HIV INFECTION
     Dosage: 300 MG/DAILY, PO
     Route: 048
     Dates: start: 20100630
  12. PYRIDOXINE [Concomitant]
  13. CIPROFLOXACIN [Concomitant]
  14. ISONIAZID [Suspect]
     Indication: TUBERCULOSIS
     Dosage: 400 MG/DAILY, PO
     Route: 048
     Dates: start: 20100522, end: 20100810
  15. OMEPRAZOLE [Concomitant]

REACTIONS (5)
  - ANAEMIA [None]
  - NEUTROPENIA [None]
  - DRUG ERUPTION [None]
  - SKIN REACTION [None]
  - LEUKOPENIA [None]
